FAERS Safety Report 9690782 (Version 2)
Quarter: 2013Q4

REPORT INFORMATION
  Report Type: Spontaneous
  Country: US (occurrence: US)
  Receive Date: 20131115
  Receipt Date: 20131202
  Transmission Date: 20140711
  Serious: Yes (Hospitalization)
  Sender: FDA-Public Use
  Company Number: US-PFIZER INC-2013324417

PATIENT
  Age: 73 Year
  Sex: Male

DRUGS (1)
  1. TIKOSYN [Suspect]
     Dosage: 125 UG, 2X/DAY
     Route: 048
     Dates: start: 2010

REACTIONS (4)
  - Cerebrovascular accident [Unknown]
  - Chest discomfort [Unknown]
  - Cardiac disorder [Unknown]
  - Joint injury [Unknown]
